FAERS Safety Report 4813453-1 (Version None)
Quarter: 2005Q4

REPORT INFORMATION
  Report Type: 
  Country: None (occurrence: None)
  Receive Date: 20051028
  Receipt Date: 20050210
  Transmission Date: 20060501
  Serious: No
  Sender: FDA-Public Use
  Company Number: 2005023011

PATIENT
  Age: 70 Year
  Sex: Female

DRUGS (2)
  1. ADVAIR DISKUS 100/50 [Suspect]
     Indication: ASTHMA
     Route: 055
  2. LISTERINE [Suspect]
     Dosage: 1TSP PER DAY
     Route: 048

REACTIONS (1)
  - DYSPNOEA [None]
